FAERS Safety Report 4317045-2 (Version None)
Quarter: 2004Q1

REPORT INFORMATION
  Report Type: 
  Country: None (occurrence: None)
  Receive Date: 20040312
  Receipt Date: 20040301
  Transmission Date: 20041129
  Serious: Yes (Death)
  Sender: FDA-Public Use
  Company Number: US-JNJFOC-20040202295

PATIENT
  Age: 90 Year
  Sex: Male
  Weight: 68.0396 kg

DRUGS (1)
  1. RISPERDAL [Suspect]

REACTIONS (1)
  - CARDIAC ARREST [None]
